FAERS Safety Report 8573093-8 (Version None)
Quarter: 2012Q3

REPORT INFORMATION
  Report Type: 
  Country: None (occurrence: None)
  Receive Date: 20120806
  Receipt Date: 20120715
  Transmission Date: 20120928
  Serious: Yes (Other)
  Sender: FDA-Public Use
  Company Number: US-ACTELION-A-NJ2012-68376

PATIENT
  Age: 79 Year
  Sex: Male

DRUGS (2)
  1. ASPIRIN [Concomitant]
  2. VENTAVIS [Suspect]
     Indication: PULMONARY ARTERIAL HYPERTENSION
     Dosage: 4-5 TREATMENTS DAILY
     Route: 055

REACTIONS (6)
  - HALLUCINATION [None]
  - PAIN IN EXTREMITY [None]
  - COUGH [None]
  - SLEEP DISORDER [None]
  - DISORIENTATION [None]
  - VISION BLURRED [None]
